FAERS Safety Report 12880953 (Version 1)
Quarter: 2016Q4

REPORT INFORMATION
  Report Type: Spontaneous
  Country: US (occurrence: US)
  Receive Date: 20161024
  Receipt Date: 20161024
  Transmission Date: 20170207
  Serious: Yes (Other)
  Sender: FDA-Public Use
  Company Number: None

PATIENT
  Age: 19 Year
  Sex: Female
  Weight: 51.75 kg

DRUGS (10)
  1. AMITRIPTYLINE [Concomitant]
     Active Substance: AMITRIPTYLINE
  2. METHOTREXATE. [Concomitant]
     Active Substance: METHOTREXATE
  3. HYOSCYAMINE. [Suspect]
     Active Substance: HYOSCYAMINE
     Indication: ABDOMINAL DISCOMFORT
     Dosage: ?          QUANTITY:2 TABLET(S);?
     Route: 048
     Dates: start: 20150518, end: 20161002
  4. HYOSCYAMINE. [Suspect]
     Active Substance: HYOSCYAMINE
     Indication: BONE TUBERCULOSIS
     Dosage: ?          QUANTITY:2 TABLET(S);?
     Route: 048
     Dates: start: 20150518, end: 20161002
  5. PREDNISONE. [Concomitant]
     Active Substance: PREDNISONE
  6. MIDODRINE [Concomitant]
     Active Substance: MIDODRINE
  7. ATENOLOL. [Concomitant]
     Active Substance: ATENOLOL
  8. TRI-SPRINTEC [Concomitant]
     Active Substance: ETHINYL ESTRADIOL\NORGESTIMATE
  9. ADVIL [Concomitant]
     Active Substance: IBUPROFEN
  10. SYNTHROID [Concomitant]
     Active Substance: LEVOTHYROXINE SODIUM

REACTIONS (2)
  - Product quality issue [None]
  - Vision blurred [None]

NARRATIVE: CASE EVENT DATE: 20160929
